FAERS Safety Report 11687689 (Version 2)
Quarter: 2015Q4

REPORT INFORMATION
  Report Type: Spontaneous
  Country: US (occurrence: US)
  Receive Date: 20151030
  Receipt Date: 20151103
  Transmission Date: 20160304
  Serious: No
  Sender: FDA-Public Use
  Company Number: US-BAYER-2015-457745

PATIENT
  Age: 66 Year
  Sex: Female
  Weight: 90.25 kg

DRUGS (2)
  1. CLARITIN [Suspect]
     Active Substance: LORATADINE
  2. INSULIN [Concomitant]
     Active Substance: INSULIN NOS

REACTIONS (2)
  - Pruritus [None]
  - Pruritus [Unknown]

NARRATIVE: CASE EVENT DATE: 20151029
